FAERS Safety Report 11401580 (Version 1)
Quarter: 2015Q3

REPORT INFORMATION
  Report Type: Spontaneous
  Country: US (occurrence: US)
  Receive Date: 20150821
  Receipt Date: 20150821
  Transmission Date: 20151125
  Serious: Yes (Other)
  Sender: FDA-Public Use
  Company Number: US-ROCHE-1620590

PATIENT
  Age: 44 Year
  Sex: Female

DRUGS (4)
  1. TOPOTECAN [Suspect]
     Active Substance: TOPOTECAN\TOPOTECAN HYDROCHLORIDE
     Indication: CERVIX CANCER METASTATIC
     Dosage: DAY 1-3
     Route: 065
  2. PACLITAXEL. [Suspect]
     Active Substance: PACLITAXEL
     Indication: CERVIX CANCER METASTATIC
     Dosage: DAY 1
     Route: 065
  3. AVASTIN [Suspect]
     Active Substance: BEVACIZUMAB
     Indication: CERVIX CANCER METASTATIC
     Dosage: DAY 1
     Route: 065
  4. GABAPENTIN. [Concomitant]
     Active Substance: GABAPENTIN

REACTIONS (8)
  - Nausea [Unknown]
  - Hypersensitivity [Unknown]
  - Neutropenia [Unknown]
  - Neuropathy peripheral [Unknown]
  - Bone marrow failure [Unknown]
  - Vomiting [Unknown]
  - Leukopenia [Unknown]
  - Pelvic pain [Recovered/Resolved]
